FAERS Safety Report 18768243 (Version 2)
Quarter: 2021Q2

REPORT INFORMATION
  Report Type: Report from Study
  Country: US (occurrence: US)
  Receive Date: 20210121
  Receipt Date: 20210415
  Transmission Date: 20210717
  Serious: Yes (Other)
  Sender: FDA-Public Use
  Company Number: US-BIOVITRUM-2020US5527

PATIENT
  Age: 4 Year
  Sex: Female

DRUGS (3)
  1. KINERET [Suspect]
     Active Substance: ANAKINRA
     Indication: JUVENILE IDIOPATHIC ARTHRITIS
     Route: 058
     Dates: start: 20200328
  2. KINERET [Suspect]
     Active Substance: ANAKINRA
     Route: 058
     Dates: start: 20200327
  3. IBUPROFEN. [Concomitant]
     Active Substance: IBUPROFEN

REACTIONS (9)
  - Emotional disorder [Unknown]
  - Off label use [Not Recovered/Not Resolved]
  - Salt craving [Unknown]
  - Pain [Unknown]
  - Headache [Unknown]
  - Abscess [Unknown]
  - Injection site pain [Unknown]
  - Injection site urticaria [Unknown]
  - Automatic bladder [Unknown]

NARRATIVE: CASE EVENT DATE: 20200328
